FAERS Safety Report 7041910-9 (Version None)
Quarter: 2010Q4

REPORT INFORMATION
  Report Type: 
  Country: None (occurrence: None)
  Receive Date: 20101013
  Receipt Date: 20090917
  Transmission Date: 20110411
  Serious: No
  Sender: FDA-Public Use
  Company Number: US-ASTRAZENECA-2009SE13973

PATIENT
  Age: 4 Year
  Sex: Female
  Weight: 16.8 kg

DRUGS (5)
  1. SYMBICORT [Suspect]
     Indication: DYSPNOEA
     Dosage: 160/4.5 UG BID
     Route: 055
     Dates: start: 20080401, end: 20090701
  2. SYMBICORT [Suspect]
     Dosage: 80/4.5 UG BID
     Route: 055
     Dates: start: 20090701, end: 20090801
  3. ZYRTEC [Concomitant]
  4. FERROUS SULFATE [Concomitant]
  5. NASONEX [Concomitant]

REACTIONS (1)
  - POLLAKIURIA [None]
